FAERS Safety Report 6383025-9 (Version None)
Quarter: 2009Q3

REPORT INFORMATION
  Report Type: 
  Country: None (occurrence: None)
  Receive Date: 20090930
  Receipt Date: 20090922
  Transmission Date: 20100115
  Serious: Yes (Death, Other)
  Sender: FDA-Public Use
  Company Number: US-BAXTER-2009BH014434

PATIENT
  Age: 30 Year
  Sex: Male

DRUGS (22)
  1. OSMITROL INJECTION [Suspect]
     Indication: DRUG USE FOR UNKNOWN INDICATION
     Route: 042
     Dates: start: 19960508
  2. MORPHINE SULFATE [Suspect]
     Indication: DISCOMFORT
     Route: 042
     Dates: start: 19960509
  3. CEFTRIAXONE SODIUM [Suspect]
     Indication: OPPORTUNISTIC INFECTION PROPHYLAXIS
     Route: 065
     Dates: start: 19960508
  4. VERSED [Suspect]
     Indication: AGITATION
     Route: 065
     Dates: start: 19960508
  5. TRIMETHOPRIM [Suspect]
     Indication: ANTIFUNGAL PROPHYLAXIS
     Route: 065
  6. AMPICILLIN [Suspect]
     Indication: OPPORTUNISTIC INFECTION PROPHYLAXIS
     Route: 065
     Dates: start: 19960508
  7. AZT [Suspect]
     Indication: ANTIRETROVIRAL THERAPY
     Route: 065
  8. 3TC [Suspect]
     Indication: ANTIRETROVIRAL THERAPY
     Route: 065
  9. SULPHADIAZINE [Suspect]
     Indication: DRUG USE FOR UNKNOWN INDICATION
     Route: 065
  10. DILANTIN [Suspect]
     Indication: CONVULSION
     Route: 065
  11. HYDROXYZINE [Suspect]
     Indication: DRUG USE FOR UNKNOWN INDICATION
     Route: 065
  12. METHADONE HYDROCHLORIDE [Suspect]
     Indication: DRUG WITHDRAWAL MAINTENANCE THERAPY
     Route: 065
  13. ETHAMBUTOL HYDROCHLORIDE [Suspect]
     Indication: OPPORTUNISTIC INFECTION PROPHYLAXIS
     Route: 065
  14. FOLIC ACID [Suspect]
     Indication: DRUG USE FOR UNKNOWN INDICATION
     Route: 065
  15. PYRIMETHAMINE [Suspect]
     Indication: DRUG USE FOR UNKNOWN INDICATION
     Route: 065
  16. ATIVAN [Suspect]
     Indication: AGITATION
     Route: 065
     Dates: start: 19960508
  17. HALDOL [Suspect]
     Indication: AGITATION
     Route: 065
     Dates: start: 19960508
  18. PEPCID [Suspect]
     Indication: DRUG USE FOR UNKNOWN INDICATION
     Route: 065
     Dates: start: 19960508
  19. CLINDAMYCIN [Suspect]
     Indication: TOXOPLASMOSIS
     Route: 065
     Dates: start: 19960508
  20. ACYCLOVIR [Suspect]
     Indication: ANTIVIRAL PROPHYLAXIS
     Route: 065
     Dates: start: 19960508
  21. COCAINE [Suspect]
     Indication: DRUG USE FOR UNKNOWN INDICATION
     Route: 065
  22. INVIRASE [Suspect]
     Indication: HIV INFECTION
     Route: 048
     Dates: start: 19960501

REACTIONS (10)
  - COMPLEX PARTIAL SEIZURES [None]
  - DEATH [None]
  - DISEASE PROGRESSION [None]
  - DRUG INEFFECTIVE [None]
  - ELECTROLYTE IMBALANCE [None]
  - HYPOTENSION [None]
  - MENTAL STATUS CHANGES [None]
  - TORSADE DE POINTES [None]
  - VENTRICULAR ARRHYTHMIA [None]
  - VENTRICULAR EXTRASYSTOLES [None]
